FAERS Safety Report 25776227 (Version 1)
Quarter: 2025Q3

REPORT INFORMATION
  Report Type: Spontaneous
  Country: US (occurrence: US)
  Receive Date: 20250909
  Receipt Date: 20250909
  Transmission Date: 20251021
  Serious: No
  Sender: DOMPE FARMACEUTICI
  Company Number: US-FARMAPROD-202502-0480

PATIENT
  Sex: Female

DRUGS (23)
  1. OXERVATE [Suspect]
     Active Substance: CENEGERMIN-BKBJ
     Indication: Neurotrophic keratopathy
     Route: 047
     Dates: start: 20250203
  2. REFRESH DIGITAL [Concomitant]
     Active Substance: CARBOXYMETHYLCELLULOSE SODIUM\GLYCERIN\POLYSORBATE 80
  3. OFLOXACIN [Concomitant]
     Active Substance: OFLOXACIN
  4. CALCIUM CITRATE [Concomitant]
     Active Substance: CALCIUM CITRATE
  5. GINGER [Concomitant]
     Active Substance: GINGER
  6. LYSINE [Concomitant]
     Active Substance: LYSINE
  7. LORATADINE [Concomitant]
     Active Substance: LORATADINE
  8. IPRATROPIUM BROMIDE [Concomitant]
     Active Substance: IPRATROPIUM BROMIDE
  9. POTASSIUM [Concomitant]
     Active Substance: POTASSIUM
  10. KRILL OIL [Concomitant]
     Active Substance: DIETARY SUPPLEMENT\KRILL OIL
  11. ALBUTEROL SULFATE [Concomitant]
     Active Substance: ALBUTEROL SULFATE
  12. DULOXETINE HYDROCHLORIDE [Concomitant]
     Active Substance: DULOXETINE HYDROCHLORIDE
  13. CRANBERRY [Concomitant]
     Active Substance: CRANBERRY
  14. SPIRIVA [Concomitant]
     Active Substance: TIOTROPIUM BROMIDE MONOHYDRATE
  15. LEVOTHYROXINE SODIUM [Concomitant]
     Active Substance: LEVOTHYROXINE SODIUM
  16. DICLOFENAC [Concomitant]
     Active Substance: DICLOFENAC
  17. MAGNESIUM CITRATE [Concomitant]
     Active Substance: MAGNESIUM CITRATE
  18. VITAMIN D3 [Concomitant]
     Active Substance: CHOLECALCIFEROL
  19. IRON [Concomitant]
     Active Substance: IRON
  20. VITAMIN C [Concomitant]
     Active Substance: ASCORBIC ACID
  21. OMEPRAZOLE [Concomitant]
     Active Substance: OMEPRAZOLE
  22. PREGABALIN [Concomitant]
     Active Substance: PREGABALIN
  23. ZOLOFT [Concomitant]
     Active Substance: SERTRALINE HYDROCHLORIDE

REACTIONS (4)
  - Eye pain [Not Recovered/Not Resolved]
  - Photophobia [Unknown]
  - Rhinalgia [Unknown]
  - Lacrimation increased [Unknown]
